FAERS Safety Report 6359225-0 (Version None)
Quarter: 2009Q3

REPORT INFORMATION
  Report Type: 
  Country: None (occurrence: None)
  Receive Date: 20090917
  Receipt Date: 20090903
  Transmission Date: 20100115
  Serious: Yes (Other)
  Sender: FDA-Public Use
  Company Number: PHHY2009JP18439

PATIENT
  Sex: Female
  Weight: 42.4 kg

DRUGS (10)
  1. AMN107 AMN+CAP [Suspect]
     Indication: CHRONIC MYELOID LEUKAEMIA
     Dosage: 800 MG/DAY
     Route: 048
     Dates: start: 20090420, end: 20090505
  2. AMN107 AMN+CAP [Suspect]
     Dosage: 400 MG/DAY
     Route: 048
     Dates: start: 20090518, end: 20090522
  3. AMN107 AMN+CAP [Suspect]
     Dosage: 400 MG/DAY
     Route: 048
     Dates: start: 20090605, end: 20090616
  4. BUP-4 [Suspect]
     Dosage: 20 MG, UNK
     Route: 048
     Dates: start: 20090425
  5. BLADDERON [Concomitant]
     Dosage: 600 MG
     Route: 048
     Dates: start: 20090417
  6. PURSENNID [Concomitant]
     Dosage: 12 MG
     Route: 048
     Dates: start: 20090415
  7. MAGLAX [Concomitant]
     Dosage: 1980 MG
     Route: 048
     Dates: start: 20090415
  8. THYRADIN S [Concomitant]
     Dosage: 500 UG
     Route: 048
     Dates: start: 20090422
  9. WARFARIN [Concomitant]
     Dosage: 3 G
     Route: 048
     Dates: start: 20090415
  10. EBRANTIL [Concomitant]
     Dosage: 30 MG
     Route: 048
     Dates: start: 20090425

REACTIONS (5)
  - ABNORMAL BEHAVIOUR [None]
  - DELIRIUM [None]
  - HALLUCINATION [None]
  - LIPASE INCREASED [None]
  - MENTAL DISORDER [None]
